FAERS Safety Report 8382524-8 (Version None)
Quarter: 2012Q2

REPORT INFORMATION
  Report Type: 
  Country: None (occurrence: None)
  Receive Date: 20120524
  Receipt Date: 20120522
  Transmission Date: 20120825
  Serious: Yes (Hospitalization)
  Sender: FDA-Public Use
  Company Number: PHHY2011AU80220

PATIENT
  Sex: Male

DRUGS (1)
  1. ZOLEDRONOC ACID [Suspect]
     Dosage: 5 MG
     Route: 042
     Dates: start: 20100813

REACTIONS (4)
  - PAIN [None]
  - CIRCULATORY COLLAPSE [None]
  - HYPOKINESIA [None]
  - SPEECH DISORDER [None]
